FAERS Safety Report 21064525 (Version 1)
Quarter: 2022Q3

REPORT INFORMATION
  Report Type: Spontaneous
  Country: US (occurrence: US)
  Receive Date: 20220711
  Receipt Date: 20220711
  Transmission Date: 20221026
  Serious: No
  Sender: FDA-Public Use
  Company Number: US-FERRINGPH-2021FE03976

PATIENT
  Age: 14 Year
  Sex: Male

DRUGS (1)
  1. ZOMACTON [Suspect]
     Active Substance: SOMATROPIN
     Indication: Product used for unknown indication
     Route: 065

REACTIONS (2)
  - Breast tenderness [Not Recovered/Not Resolved]
  - Gynaecomastia [Not Recovered/Not Resolved]
